FAERS Safety Report 8578478-1 (Version None)
Quarter: 2012Q3

REPORT INFORMATION
  Report Type: 
  Country: None (occurrence: None)
  Receive Date: 20120726
  Receipt Date: 20120713
  Transmission Date: 20120928
  Serious: Yes (Hospitalization, Disabling, Other)
  Sender: FDA-Public Use
  Company Number: 2012P1011580

PATIENT
  Age: 84 Year
  Sex: Male
  Weight: 77.1115 kg

DRUGS (32)
  1. ZINC SULFATE [Concomitant]
  2. NSAIDS [Concomitant]
  3. METHYLPREDNISOLONE 4MG TAB [Suspect]
     Indication: INFLAMMATION
     Dosage: 24 MG;X1 ; 8 MG;AM ; 8 MG;NOON ; 4 MG;HS ; 4 MG;QID
     Dates: start: 20120328, end: 20120328
  4. METHYLPREDNISOLONE 4MG TAB [Suspect]
     Indication: TYMPANIC MEMBRANE DISORDER
     Dosage: 24 MG;X1 ; 8 MG;AM ; 8 MG;NOON ; 4 MG;HS ; 4 MG;QID
     Dates: start: 20120328, end: 20120328
  5. METHYLPREDNISOLONE 4MG TAB [Suspect]
     Indication: INFLAMMATION
     Dosage: 24 MG;X1 ; 8 MG;AM ; 8 MG;NOON ; 4 MG;HS ; 4 MG;QID
     Dates: start: 20120329, end: 20120329
  6. METHYLPREDNISOLONE 4MG TAB [Suspect]
     Indication: TYMPANIC MEMBRANE DISORDER
     Dosage: 24 MG;X1 ; 8 MG;AM ; 8 MG;NOON ; 4 MG;HS ; 4 MG;QID
     Dates: start: 20120329, end: 20120329
  7. METHYLPREDNISOLONE 4MG TAB [Suspect]
     Indication: INFLAMMATION
     Dosage: 24 MG;X1 ; 8 MG;AM ; 8 MG;NOON ; 4 MG;HS ; 4 MG;QID
     Dates: start: 20120329, end: 20120329
  8. METHYLPREDNISOLONE 4MG TAB [Suspect]
     Indication: TYMPANIC MEMBRANE DISORDER
     Dosage: 24 MG;X1 ; 8 MG;AM ; 8 MG;NOON ; 4 MG;HS ; 4 MG;QID
     Dates: start: 20120329, end: 20120329
  9. METHYLPREDNISOLONE 4MG TAB [Suspect]
     Indication: INFLAMMATION
     Dosage: 24 MG;X1 ; 8 MG;AM ; 8 MG;NOON ; 4 MG;HS ; 4 MG;QID
     Dates: start: 20120329, end: 20120329
  10. METHYLPREDNISOLONE 4MG TAB [Suspect]
     Indication: TYMPANIC MEMBRANE DISORDER
     Dosage: 24 MG;X1 ; 8 MG;AM ; 8 MG;NOON ; 4 MG;HS ; 4 MG;QID
     Dates: start: 20120329, end: 20120329
  11. METHYLPREDNISOLONE 4MG TAB [Suspect]
     Indication: INFLAMMATION
     Dosage: 24 MG;X1 ; 8 MG;AM ; 8 MG;NOON ; 4 MG;HS ; 4 MG;QID
     Dates: start: 20120330
  12. METHYLPREDNISOLONE 4MG TAB [Suspect]
     Indication: TYMPANIC MEMBRANE DISORDER
     Dosage: 24 MG;X1 ; 8 MG;AM ; 8 MG;NOON ; 4 MG;HS ; 4 MG;QID
     Dates: start: 20120330
  13. SIMVASTATIN [Concomitant]
  14. LISINOPRIL [Concomitant]
  15. HUMALOG [Concomitant]
  16. VITAMIN E [Concomitant]
  17. ASPIRIN [Concomitant]
  18. CHONDROITIN SULFATE [Concomitant]
  19. MULTI-VITAMIN [Concomitant]
  20. ASCORBIC ACID [Concomitant]
  21. CHROMIUM CHLORIDE [Concomitant]
  22. LUTEIN [Concomitant]
  23. FINASTERIDE [Concomitant]
  24. CO-Q10 ENZYME [Concomitant]
  25. ACIDOPHILUS PROBIOTIC [Concomitant]
  26. SAW PALMETTO [Concomitant]
  27. GARLIC [Concomitant]
  28. CALCIUM [Concomitant]
  29. VITAMIN D [Concomitant]
  30. FISH OIL [Concomitant]
  31. BIOTIN [Concomitant]
  32. MAGNESIUM [Concomitant]

REACTIONS (19)
  - RECTAL HAEMORRHAGE [None]
  - BACK PAIN [None]
  - POOR QUALITY SLEEP [None]
  - ASTHENIA [None]
  - ARTHRALGIA [None]
  - NAUSEA [None]
  - CHEST PAIN [None]
  - GAIT DISTURBANCE [None]
  - INCORRECT DOSE ADMINISTERED [None]
  - DISORIENTATION [None]
  - CONTUSION [None]
  - DEPRESSION [None]
  - VISUAL IMPAIRMENT [None]
  - ANAEMIA [None]
  - DIARRHOEA HAEMORRHAGIC [None]
  - FALL [None]
  - BLOOD GLUCOSE INCREASED [None]
  - HAEMOGLOBIN DECREASED [None]
  - GASTROINTESTINAL HAEMORRHAGE [None]
